FAERS Safety Report 6092464-5 (Version None)
Quarter: 2009Q1

REPORT INFORMATION
  Report Type: 
  Country: None (occurrence: None)
  Receive Date: 20090225
  Receipt Date: 20090217
  Transmission Date: 20090719
  Serious: Yes (Other)
  Sender: FDA-Public Use
  Company Number: AU-MERCK-0902AUS00035

PATIENT
  Age: 80 Year
  Sex: Male

DRUGS (11)
  1. FOSAMAX PLUS D [Suspect]
     Route: 048
     Dates: start: 20090217, end: 20090217
  2. FOSAMAX PLUS D [Suspect]
     Route: 048
  3. ESOMEPRAZOLE MAGNESIUM [Concomitant]
     Route: 065
  4. MISOPROSTOL [Concomitant]
     Route: 065
  5. FENOFIBRATE [Concomitant]
     Route: 065
  6. ATORVASTATIN [Concomitant]
     Route: 065
  7. CLOPIDOGREL BISULFATE [Concomitant]
     Route: 065
  8. ASPIRIN [Concomitant]
     Route: 065
  9. METOPROLOL TARTRATE [Concomitant]
     Route: 065
  10. CALCIUM CARBONATE [Concomitant]
     Route: 065
  11. AMITRIPTYLINE HYDROCHLORIDE [Concomitant]
     Route: 065

REACTIONS (5)
  - ADVERSE EVENT [None]
  - INAPPROPRIATE SCHEDULE OF DRUG ADMINISTRATION [None]
  - NO ADVERSE EVENT [None]
  - OVERDOSE [None]
  - PROSTATE CANCER [None]
